FAERS Safety Report 8326790 (Version 3)
Quarter: 2012Q4

REPORT INFORMATION
  Report Type: 
  Country: CA (occurrence: CA)
  Receive Date: 20120109
  Receipt Date: 20121231
  Transmission Date: 20130627
  Serious: Yes (Hospitalization, Other)
  Sender: FDA-Public Use
  Company Number: PHHY2012CA001114

PATIENT
  Age: 85 Year
  Sex: Female

DRUGS (13)
  1. ACLASTA [Suspect]
     Indication: OSTEOPOROSIS
     Dosage: 5 mg, UNK
     Route: 042
     Dates: start: 20090310
  2. ACLASTA [Suspect]
     Dosage: 5 mg, UNK
     Route: 042
     Dates: start: 20100304
  3. ACLASTA [Suspect]
     Dosage: 5 mg, UNK
     Route: 042
     Dates: start: 20110310
  4. CALCIUM [Concomitant]
     Dosage: UNK UKN, UNK
  5. VITAMIN D [Concomitant]
     Dosage: UNK UKN, UNK
  6. TYLENOL [Concomitant]
     Dosage: UNK UKN, UNK
  7. SYNTHROID [Concomitant]
  8. ASA [Concomitant]
     Dosage: UNK UKN, UNK
  9. EFFEXOR [Concomitant]
     Dosage: UNK UKN, UNK
  10. LIPITOR [Concomitant]
     Dosage: UNK UKN, UNK
  11. SPIRIVA [Concomitant]
     Dosage: UNK UKN, UNK
  12. ADVAIR [Concomitant]
     Dosage: UNK UKN, UNK
  13. VENTOLIN [Concomitant]

REACTIONS (15)
  - Pneumonia aspiration [Recovered/Resolved]
  - Cough [Recovered/Resolved]
  - Pyrexia [Recovered/Resolved]
  - Aspiration [Recovered/Resolved]
  - Dyspnoea [Recovered/Resolved]
  - Dysphagia [Recovered/Resolved]
  - Lung infiltration [Recovered/Resolved]
  - Throat tightness [Recovered/Resolved]
  - Blood magnesium decreased [Recovered/Resolved]
  - Blood creatinine increased [Recovered/Resolved]
  - Anaemia [Recovered/Resolved]
  - Haemoglobin decreased [Recovered/Resolved]
  - Subclavian steal syndrome [Recovered/Resolved]
  - Gamma-glutamyltransferase increased [Recovered/Resolved]
  - Blood glucose increased [Unknown]
